FAERS Safety Report 6589095-7 (Version None)
Quarter: 2010Q1

REPORT INFORMATION
  Report Type: 
  Country: None (occurrence: None)
  Receive Date: 20100202
  Receipt Date: 20091223
  Transmission Date: 20100710
  Serious: Yes (Life-Threatening, Hospitalization, Other)
  Sender: FDA-Public Use
  Company Number: WAES 0912USA03175

PATIENT
  Age: 62 Year
  Sex: Male
  Weight: 94.8018 kg

DRUGS (5)
  1. JANUMET [Suspect]
     Indication: DIABETES MELLITUS
     Dosage: 50/500 MG/BID/PO
     Route: 048
     Dates: start: 20090801, end: 20091201
  2. NEXIUM [Concomitant]
  3. BUPROPION HYDROCHLORIDE [Concomitant]
  4. PRAVASTATIN SODIUM [Concomitant]
  5. RAMIPRIL [Concomitant]

REACTIONS (1)
  - PANCREATITIS ACUTE [None]
